FAERS Safety Report 13152691 (Version 1)
Quarter: 2017Q1

REPORT INFORMATION
  Report Type: Report from Study
  Country: US (occurrence: US)
  Receive Date: 20170125
  Receipt Date: 20170125
  Transmission Date: 20170428
  Serious: Yes (Other)
  Sender: FDA-Public Use
  Company Number: US-AMGEN-USASL2017010731

PATIENT
  Sex: Female

DRUGS (1)
  1. ENBREL [Suspect]
     Active Substance: ETANERCEPT
     Indication: RHEUMATOID ARTHRITIS
     Dosage: UNK
     Route: 065

REACTIONS (7)
  - Ear infection [Unknown]
  - Sinusitis [Unknown]
  - Vaginal infection [Unknown]
  - Memory impairment [Unknown]
  - Lower respiratory tract infection [Unknown]
  - Abscess [Unknown]
  - Oropharyngeal pain [Unknown]
